FAERS Safety Report 11332919 (Version 1)
Quarter: 2015Q3

REPORT INFORMATION
  Report Type: Spontaneous
  Country: US (occurrence: US)
  Receive Date: 20150803
  Receipt Date: 20150803
  Transmission Date: 20151125
  Serious: No
  Sender: FDA-Public Use
  Company Number: US-ELI_LILLY_AND_COMPANY-US200603000419

PATIENT
  Age: 46 Year
  Sex: Male
  Weight: 85.26 kg

DRUGS (5)
  1. ZYPREXA [Suspect]
     Active Substance: OLANZAPINE
     Dosage: 10 MG, UNK
     Dates: start: 200106, end: 200206
  2. ZYPREXA [Suspect]
     Active Substance: OLANZAPINE
     Dosage: 15 MG, UNK
     Dates: start: 200206, end: 2006
  3. QUETIAPINE [Concomitant]
     Active Substance: QUETIAPINE
     Dates: start: 200503
  4. ZYPREXA [Suspect]
     Active Substance: OLANZAPINE
     Dosage: 5 MG, UNK
     Dates: start: 200105, end: 200106
  5. RISPERIDONE. [Concomitant]
     Active Substance: RISPERIDONE
     Dates: start: 200008

REACTIONS (6)
  - Diabetes mellitus [Unknown]
  - Vision blurred [Unknown]
  - Weight decreased [Unknown]
  - Weight increased [Unknown]
  - Polydipsia [Unknown]
  - Hyperphagia [Unknown]

NARRATIVE: CASE EVENT DATE: 200505
